FAERS Safety Report 7232472-1 (Version None)
Quarter: 2011Q1

REPORT INFORMATION
  Report Type: 
  Country: None (occurrence: None)
  Receive Date: 20110105
  Receipt Date: 20101220
  Transmission Date: 20110831
  Serious: Yes (Other)
  Sender: FDA-Public Use
  Company Number: 2010P1003517

PATIENT
  Sex: Female

DRUGS (2)
  1. CLOTRIMAZOLE/BETAMETHASONE DIPROPIONATE CREAM USP 1% 0.05% (NO PREF. N [Suspect]
  2. CLOBETASOL PROPIONATE CREAM USP 0.05% (NO PREF. NAME) [Suspect]

REACTIONS (4)
  - DRUG DISPENSING ERROR [None]
  - PRODUCT PACKAGING ISSUE [None]
  - WRONG DRUG ADMINISTERED [None]
  - MULTIPLE INJURIES [None]
